FAERS Safety Report 6883290-5 (Version None)
Quarter: 2010Q3

REPORT INFORMATION
  Report Type: 
  Country: None (occurrence: None)
  Receive Date: 20100727
  Receipt Date: 20080507
  Transmission Date: 20110219
  Serious: Yes (Hospitalization, Other)
  Sender: FDA-Public Use
  Company Number: US-PFIZER INC-2005130950

PATIENT
  Sex: Female
  Weight: 125.6 kg

DRUGS (11)
  1. CELEBREX [Suspect]
     Indication: PAIN
     Dates: start: 19990901
  2. CELEBREX [Suspect]
     Indication: ARTHRITIS
  3. CLONIDINE [Concomitant]
     Route: 065
  4. LIPITOR [Concomitant]
     Route: 065
  5. CELEXA [Concomitant]
     Route: 065
  6. XANAX [Concomitant]
     Route: 065
  7. ALLEGRA [Concomitant]
     Route: 065
  8. ACTONEL [Concomitant]
     Route: 065
  9. NIFEDIPINE [Concomitant]
     Route: 065
  10. PAXIL [Concomitant]
     Route: 065
  11. LASIX [Concomitant]
     Route: 065

REACTIONS (1)
  - CEREBROVASCULAR ACCIDENT [None]
